FAERS Safety Report 18930212 (Version 5)
Quarter: 2021Q3

REPORT INFORMATION
  Report Type: Spontaneous
  Country: US (occurrence: US)
  Receive Date: 20210224
  Receipt Date: 20210927
  Transmission Date: 20211014
  Serious: No
  Sender: FDA-Public Use
  Company Number: US-JNJFOC-20210233450

PATIENT
  Age: 51 Year
  Sex: Male

DRUGS (2)
  1. CABOTEGRAVIR [Suspect]
     Active Substance: CABOTEGRAVIR
     Indication: HIV INFECTION
     Dosage: UNK, IM INJECTION
     Route: 030
  2. RILPIVIRINE [Suspect]
     Active Substance: RILPIVIRINE
     Indication: HIV INFECTION
     Dosage: UNK, IM INJECTION
     Route: 030

REACTIONS (14)
  - Weight fluctuation [Unknown]
  - Ageusia [Not Recovered/Not Resolved]
  - Oral herpes [Not Recovered/Not Resolved]
  - Ill-defined disorder [Unknown]
  - Nasopharyngitis [Recovered/Resolved]
  - Dysphonia [Not Recovered/Not Resolved]
  - Anosmia [Not Recovered/Not Resolved]
  - Discomfort [Recovered/Resolved]
  - Cough [Recovered/Resolved]
  - Somnolence [Not Recovered/Not Resolved]
  - Headache [Recovered/Resolved]
  - Illness [Unknown]
  - Coronavirus infection [Recovering/Resolving]
  - Patient isolation [Unknown]

NARRATIVE: CASE EVENT DATE: 202101
